FAERS Safety Report 26124105 (Version 1)
Quarter: 2025Q4

REPORT INFORMATION
  Report Type: Spontaneous
  Country: US (occurrence: US)
  Receive Date: 20251205
  Receipt Date: 20251205
  Transmission Date: 20260117
  Serious: Yes (Death, Life-Threatening, Hospitalization, Other)
  Sender: Onesource Specialty Pharma
  Company Number: US-STRIDES ARCOLAB LIMITED-2025OS001392

PATIENT
  Age: 13 Year
  Sex: Female

DRUGS (1)
  1. BENZONATATE [Suspect]
     Active Substance: BENZONATATE
     Indication: Product used for unknown indication
     Dosage: TWO PRESCRIPTION BOTTLES OF BENZONATATE 100MG (APPROXIMATELY 90 EACH) WITH APPROXIMATELY 30 PILLS UN
     Route: 065

REACTIONS (6)
  - Cerebral disorder [Fatal]
  - Pulse absent [Fatal]
  - Sinus tachycardia [Fatal]
  - Areflexia [Fatal]
  - Intentional overdose [Fatal]
  - Completed suicide [Fatal]
